FAERS Safety Report 14946805 (Version 5)
Quarter: 2018Q2

REPORT INFORMATION
  Report Type: Spontaneous
  Country: SE (occurrence: SE)
  Receive Date: 20180529
  Receipt Date: 20180622
  Transmission Date: 20180711
  Serious: Yes (Other)
  Sender: FDA-Public Use
  Company Number: SE-009507513-1805SWE011187

PATIENT
  Age: 1 Year
  Sex: Male

DRUGS (4)
  1. AERIUS [Suspect]
     Active Substance: DESLORATADINE
     Indication: FOOD ALLERGY
     Dosage: 0.5 MG/ML, PRN ; AS NECESSARY
     Route: 048
  2. AERIUS [Suspect]
     Active Substance: DESLORATADINE
     Indication: SEASONAL ALLERGY
     Dosage: STRENGTH REPORTED AS 0.5 MG/ML, TWICE DAILY(MORNING AND EVENING)
     Route: 048
     Dates: start: 20180501, end: 2018
  3. FLUTIDE [Concomitant]
     Active Substance: FLUTICASONE PROPIONATE
     Dosage: UNK
  4. AIROMIR [Concomitant]
     Active Substance: ALBUTEROL SULFATE
     Dosage: UNK

REACTIONS (8)
  - Seasonal allergy [Not Recovered/Not Resolved]
  - Drug administered to patient of inappropriate age [Unknown]
  - Asthma [Unknown]
  - Food allergy [Not Recovered/Not Resolved]
  - Vomiting [Recovered/Resolved]
  - Rash [Not Recovered/Not Resolved]
  - Drug ineffective for unapproved indication [Not Recovered/Not Resolved]
  - Wheezing [Not Recovered/Not Resolved]

NARRATIVE: CASE EVENT DATE: 2018
